FAERS Safety Report 5042040-8 (Version None)
Quarter: 2006Q2

REPORT INFORMATION
  Report Type: 
  Country: None (occurrence: None)
  Receive Date: 20060627
  Receipt Date: 20060615
  Transmission Date: 20061013
  Serious: Yes (Other)
  Sender: FDA-Public Use
  Company Number: 2006071471

PATIENT
  Age: 52 Year
  Sex: Female
  Weight: 80.2867 kg

DRUGS (3)
  1. NORVASC [Suspect]
     Indication: PULMONARY HYPERTENSION
     Dosage: 5 MG (5 MG, 1 IN 1 D)
     Dates: start: 19980101
  2. NORVASC [Suspect]
  3. SYNTHROID [Concomitant]

REACTIONS (10)
  - ASTHENIA [None]
  - CHEST PAIN [None]
  - DIZZINESS [None]
  - DRUG INEFFECTIVE [None]
  - DYSPNOEA [None]
  - ELECTROCARDIOGRAM ABNORMAL [None]
  - FATIGUE [None]
  - HYPERHIDROSIS [None]
  - LOSS OF CONSCIOUSNESS [None]
  - PHARMACEUTICAL PRODUCT COMPLAINT [None]
